FAERS Safety Report 9477312 (Version 1)
Quarter: 2013Q3

REPORT INFORMATION
  Report Type: Spontaneous
  Country: US (occurrence: US)
  Receive Date: 20130826
  Receipt Date: 20130826
  Transmission Date: 20140515
  Serious: Yes (Hospitalization)
  Sender: FDA-Public Use
  Company Number: US-TEVA-427622USA

PATIENT
  Age: 73 Year
  Sex: Female

DRUGS (1)
  1. MODAFINIL [Suspect]
     Indication: FATIGUE

REACTIONS (2)
  - Stress cardiomyopathy [Recovered/Resolved]
  - Off label use [Unknown]
